FAERS Safety Report 7687420-7 (Version None)
Quarter: 2011Q3

REPORT INFORMATION
  Report Type: 
  Country: None (occurrence: None)
  Receive Date: 20110816
  Receipt Date: 20110802
  Transmission Date: 20111222
  Serious: Yes (Other)
  Sender: FDA-Public Use
  Company Number: PHHY2011BR70570

PATIENT
  Sex: Female

DRUGS (1)
  1. DIOVAN [Suspect]
     Dosage: 2 TABLETS A DAY (160 MG)
     Route: 048

REACTIONS (2)
  - AORTIC ANEURYSM [None]
  - NERVOUSNESS [None]
